FAERS Safety Report 16059801 (Version 1)
Quarter: 2019Q1

REPORT INFORMATION
  Report Type: Spontaneous
  Country: ES (occurrence: ES)
  Receive Date: 20190311
  Receipt Date: 20190311
  Transmission Date: 20190418
  Serious: Yes (Hospitalization)
  Sender: FDA-Public Use
  Company Number: ES-TEVA-2019-ES-1022058

PATIENT
  Age: 87 Year
  Sex: Female

DRUGS (4)
  1. CLEXANE [Concomitant]
     Active Substance: ENOXAPARIN SODIUM
  2. IRBESART?N + HIDROCLOROTIAZIDA [Concomitant]
  3. DIANBEN [Concomitant]
     Active Substance: METFORMIN HYDROCHLORIDE
  4. DICLOFENACO (745A) [Suspect]
     Active Substance: DICLOFENAC
     Indication: ANALGESIC THERAPY
     Dosage: 100 MG/DAY
     Route: 065
     Dates: start: 20180115, end: 20180121

REACTIONS (1)
  - Upper gastrointestinal haemorrhage [Recovered/Resolved]

NARRATIVE: CASE EVENT DATE: 20180121
